FAERS Safety Report 7684782-1 (Version None)
Quarter: 2011Q3

REPORT INFORMATION
  Report Type: 
  Country: None (occurrence: None)
  Receive Date: 20110810
  Receipt Date: 20110726
  Transmission Date: 20111222
  Serious: Yes (Hospitalization)
  Sender: FDA-Public Use
  Company Number: 2011SP002521

PATIENT
  Sex: Male

DRUGS (13)
  1. DOCUSATE [Concomitant]
  2. XOPENEX HFA [Concomitant]
  3. SENSIPAR [Concomitant]
  4. CARTIA XT [Concomitant]
  5. FOLIC ACID [Concomitant]
  6. DRONEDARONE HCL [Concomitant]
  7. VITAMIN TAB [Concomitant]
  8. SEVELAMER [Concomitant]
  9. XOPENEX [Suspect]
     Indication: BRONCHOSPASM
     Dosage: 12.5 MG/3ML; INHALATION
     Route: 055
  10. ZANTAC [Concomitant]
  11. ALL OTHER THERAPEUTIC PRODUCTS [Concomitant]
  12. HYDROCODONE BITARTRATE [Concomitant]
  13. SODIUM CITRATE [Concomitant]

REACTIONS (8)
  - PRODUCT PACKAGING QUANTITY ISSUE [None]
  - HEART RATE DECREASED [None]
  - BRONCHOSPASM [None]
  - DRUG EFFECT DECREASED [None]
  - DYSPNOEA [None]
  - DRUG INEFFECTIVE [None]
  - PRODUCT TASTE ABNORMAL [None]
  - DYSGEUSIA [None]
